FAERS Safety Report 5744045-8 (Version None)
Quarter: 2008Q2

REPORT INFORMATION
  Report Type: 
  Country: None (occurrence: None)
  Receive Date: 20080516
  Receipt Date: 20080516
  Transmission Date: 20081010
  Serious: Yes (Other)
  Sender: FDA-Public Use
  Company Number: None

PATIENT
  Sex: Female
  Weight: 44.4525 kg

DRUGS (1)
  1. EFFEXOR [Suspect]
     Indication: DEPRESSION
     Dosage: 100-400 1 - 3X DAILY PO
     Route: 048
     Dates: start: 19960101, end: 20070517

REACTIONS (1)
  - ALCOHOL ABUSE [None]
